FAERS Safety Report 22269737 (Version 1)
Quarter: 2023Q2

REPORT INFORMATION
  Report Type: Spontaneous
  Country: NL (occurrence: None)
  Receive Date: 20230501
  Receipt Date: 20230501
  Transmission Date: 20230722
  Serious: Yes (Life-Threatening, Hospitalization, Other)
  Sender: FDA-Public Use
  Company Number: None

PATIENT
  Age: 53 Year
  Sex: Male
  Weight: 110 kg

DRUGS (2)
  1. METHOTREXATE [Suspect]
     Active Substance: METHOTREXATE
     Indication: Psoriasis
     Dosage: STRENGTH:2.5 MG, 1 X PER WEEK 4 PIECES
     Dates: start: 19990101
  2. FOLIC ACID [Concomitant]
     Active Substance: FOLIC ACID
     Dosage: TABLET, 5 MG (MILLIGRAM)

REACTIONS (6)
  - Vasculitis necrotising [Recovering/Resolving]
  - Acute kidney injury [Recovering/Resolving]
  - Stevens-Johnson syndrome [Recovering/Resolving]
  - Streptococcal sepsis [Recovering/Resolving]
  - Myelosuppression [Recovering/Resolving]
  - Pancytopenia [Recovering/Resolving]

NARRATIVE: CASE EVENT DATE: 20221101
